FAERS Safety Report 15669850 (Version 3)
Quarter: 2020Q1

REPORT INFORMATION
  Report Type: Report from Study
  Country: KR (occurrence: KR)
  Receive Date: 20181129
  Receipt Date: 20200227
  Transmission Date: 20200409
  Serious: Yes (Hospitalization)
  Sender: FDA-Public Use
  Company Number: KR-GLAXOSMITHKLINE-KR2018GSK206054

PATIENT
  Age: 82 Year
  Sex: Male
  Weight: 55 kg

DRUGS (7)
  1. STILLEN [Concomitant]
     Indication: GASTRITIS
     Dosage: 90 MG, BID
     Dates: start: 20100304
  2. PARAMACET [Concomitant]
     Active Substance: ACETAMINOPHEN\TRAMADOL
     Indication: AORTIC STENOSIS
     Dosage: 325 MG, BID
     Route: 048
     Dates: start: 20100304
  3. MYONAL [Concomitant]
     Indication: OSTEOARTHRITIS
     Dosage: 500 MG, BID
     Route: 048
     Dates: start: 20120717
  4. UMECLIDINIUM BR+VILANTEROL TRIFENATATE [Suspect]
     Active Substance: UMECLIDINIUM BROMIDE\VILANTEROL TRIFENATATE
     Indication: CHRONIC OBSTRUCTIVE PULMONARY DISEASE
     Dosage: 1 PUFF(S), QD
     Route: 055
     Dates: start: 20180326
  5. DECAQUINON [Concomitant]
     Indication: AORTIC STENOSIS
     Dosage: 5 MG, BID
     Dates: start: 20180327
  6. HERBEN [Concomitant]
     Active Substance: DILTIAZEM HYDROCHLORIDE
     Indication: ESSENTIAL HYPERTENSION
     Dosage: 90 MG, BID
     Dates: start: 20180327
  7. CELEBREX [Concomitant]
     Active Substance: CELECOXIB
     Indication: OSTEOARTHRITIS
     Dosage: 200 MG, QD
     Dates: start: 20100617

REACTIONS (1)
  - Dyspnoea [Recovered/Resolved]

NARRATIVE: CASE EVENT DATE: 20180327
